FAERS Safety Report 14644340 (Version 11)
Quarter: 2019Q2

REPORT INFORMATION
  Report Type: Spontaneous
  Country: CA (occurrence: CA)
  Receive Date: 20180315
  Receipt Date: 20190403
  Transmission Date: 20190711
  Serious: Yes (Other)
  Sender: FDA-Public Use
  Company Number: CA-PFIZER INC-2018094617

PATIENT
  Age: 63 Year
  Sex: Male
  Weight: 104 kg

DRUGS (15)
  1. TRAZODONE [Concomitant]
     Active Substance: TRAZODONE HYDROCHLORIDE
     Dosage: 50 MG, DAILY
  2. RAMIPRIL. [Concomitant]
     Active Substance: RAMIPRIL
     Dosage: UNK
  3. XELJANZ [Suspect]
     Active Substance: TOFACITINIB CITRATE
     Indication: RHEUMATOID ARTHRITIS
     Dosage: 5 MG, 2X/DAY
     Route: 048
     Dates: start: 20180324, end: 201803
  4. XELJANZ [Suspect]
     Active Substance: TOFACITINIB CITRATE
     Dosage: 5 MG, 1X/DAY
     Route: 048
     Dates: start: 201807
  5. SIMVASTATIN. [Concomitant]
     Active Substance: SIMVASTATIN
     Dosage: UNK
  6. ROSUVASTATIN. [Concomitant]
     Active Substance: ROSUVASTATIN
     Dosage: 20 MG, DAILY
  7. ARAVA [Concomitant]
     Active Substance: LEFLUNOMIDE
     Indication: RHEUMATOID ARTHRITIS
     Dosage: 20 MG, DAILY
     Dates: start: 2010
  8. OXYCODONE [Concomitant]
     Active Substance: OXYCODONE
     Dosage: 5-10 MG, AS NEEDED
  9. ZOPICLONE [Concomitant]
     Active Substance: ZOPICLONE
     Dosage: 7.5 MG, HALF A PILL  EVERY NIGHT
  10. ASPIRIN /00002701/ [Concomitant]
     Active Substance: ASPIRIN
     Dosage: 81 MG, DAILY
  11. PREDNISONE. [Concomitant]
     Active Substance: PREDNISONE
     Dosage: 3 MG, DAILY
  12. RAMIPRIL. [Concomitant]
     Active Substance: RAMIPRIL
     Dosage: 2.5 MG, DAILY
  13. LEFLUNOMIDE. [Concomitant]
     Active Substance: LEFLUNOMIDE
     Indication: RHEUMATOID ARTHRITIS
     Dosage: 20 MG, 1X/DAY
     Route: 048
     Dates: start: 2010
  14. FENTANYL. [Concomitant]
     Active Substance: FENTANYL
     Dosage: 25 UG, EVERY 3 DAYS, PATCH
     Route: 062
  15. PREDNISONE. [Concomitant]
     Active Substance: PREDNISONE
     Dosage: 4 MG, UNK

REACTIONS (14)
  - Chest pain [Not Recovered/Not Resolved]
  - Haemorrhage [Unknown]
  - Post procedural haemorrhage [Not Recovered/Not Resolved]
  - Sinus congestion [Unknown]
  - Calculus bladder [Not Recovered/Not Resolved]
  - Back injury [Unknown]
  - Drug ineffective [Not Recovered/Not Resolved]
  - Hypertension [Not Recovered/Not Resolved]
  - Condition aggravated [Not Recovered/Not Resolved]
  - Intentional product misuse [Unknown]
  - Nephrolithiasis [Not Recovered/Not Resolved]
  - Insomnia [Not Recovered/Not Resolved]
  - Rotator cuff syndrome [Not Recovered/Not Resolved]
  - Muscle strain [Not Recovered/Not Resolved]

NARRATIVE: CASE EVENT DATE: 20180324
